FAERS Safety Report 15098302 (Version 3)
Quarter: 2019Q1

REPORT INFORMATION
  Report Type: Report from Study
  Country: DO (occurrence: DO)
  Receive Date: 20180702
  Receipt Date: 20190320
  Transmission Date: 20190417
  Serious: Yes (Hospitalization, Other)
  Sender: FDA-Public Use
  Company Number: DO-SA-2017SA228642

PATIENT
  Age: 35 Year
  Sex: Male

DRUGS (2)
  1. TERIFLUNOMIDE. [Suspect]
     Active Substance: TERIFLUNOMIDE
     Dosage: 14 MG,QD
     Route: 048
     Dates: start: 20180607
  2. TERIFLUNOMIDE. [Suspect]
     Active Substance: TERIFLUNOMIDE
     Indication: MULTIPLE SCLEROSIS
     Dosage: 14 MG,QD
     Route: 048
     Dates: start: 20170713, end: 20180228

REACTIONS (9)
  - Fatigue [Not Recovered/Not Resolved]
  - Memory impairment [Unknown]
  - Gastrooesophageal reflux disease [Not Recovered/Not Resolved]
  - Pain in extremity [Not Recovered/Not Resolved]
  - Hemiparesis [Recovered/Resolved]
  - Asthenia [Not Recovered/Not Resolved]
  - Vitamin B complex deficiency [Unknown]
  - Product dose omission [Not Recovered/Not Resolved]
  - Facial paralysis [Not Recovered/Not Resolved]

NARRATIVE: CASE EVENT DATE: 2017
